FAERS Safety Report 12910775 (Version 1)
Quarter: 2016Q4

REPORT INFORMATION
  Report Type: Spontaneous
  Country: US (occurrence: US)
  Receive Date: 20161104
  Receipt Date: 20161104
  Transmission Date: 20170207
  Serious: No
  Sender: FDA-Public Use
  Company Number: US-NAVINTA LLC-000022

PATIENT
  Sex: Female

DRUGS (1)
  1. FAMOTIDINE 40 MG/ 5 ML [Suspect]
     Active Substance: FAMOTIDINE
     Indication: PRODUCT USED FOR UNKNOWN INDICATION
     Route: 048

REACTIONS (4)
  - Emotional distress [Unknown]
  - Crying [Unknown]
  - Abnormal behaviour [Unknown]
  - Product quality issue [None]
